FAERS Safety Report 23821246 (Version 3)
Quarter: 2024Q3

REPORT INFORMATION
  Report Type: Spontaneous
  Country: US (occurrence: US)
  Receive Date: 20240506
  Receipt Date: 20240701
  Transmission Date: 20241016
  Serious: No
  Sender: PFIZER
  Company Number: US-PFIZER INC-202400098756

PATIENT
  Age: 67 Year
  Sex: Female

DRUGS (1)
  1. NYVEPRIA [Suspect]
     Active Substance: PEGFILGRASTIM-APGF
     Dosage: 1X6MG/0.6ML, SINGLE DOSE INJECTABLE

REACTIONS (2)
  - Device physical property issue [Unknown]
  - Device leakage [Unknown]
